FAERS Safety Report 6785110-6 (Version None)
Quarter: 2010Q2

REPORT INFORMATION
  Report Type: 
  Country: None (occurrence: None)
  Receive Date: 20100622
  Receipt Date: 20100614
  Transmission Date: 20101027
  Serious: Yes (Other)
  Sender: FDA-Public Use
  Company Number: US-ABBOTT-10P-163-0651029-00

PATIENT
  Sex: Male

DRUGS (2)
  1. DEXAMETHASONE ACETATE [Suspect]
     Indication: PROSTATE CANCER
     Dosage: WEEKLY ON DAYS 1 AND 2
     Route: 042
  2. CALCITRIOL [Concomitant]
     Indication: PROSTATE CANCER
     Dosage: OVER 1 HOUR WEEKLY ON DAY 2, 8 HOURS AFTER DEXAMETHASONE
     Route: 042

REACTIONS (1)
  - HYPERGLYCAEMIA [None]
